FAERS Safety Report 8862209 (Version 1)
Quarter: 2012Q4

REPORT INFORMATION
  Report Type: Report from Study
  Country: JP (occurrence: JP)
  Receive Date: 20121026
  Receipt Date: 20121026
  Transmission Date: 20130627
  Serious: Yes (Hospitalization)
  Sender: FDA-Public Use
  Company Number: JP-ELI_LILLY_AND_COMPANY-JP201210005753

PATIENT
  Age: 68 Year
  Sex: Female
  Weight: 56.4 kg

DRUGS (4)
  1. DULOXETINE HYDROCHLORIDE [Suspect]
     Indication: MAJOR DEPRESSION
     Dosage: 20 mg, qd
     Route: 048
     Dates: start: 20110427, end: 20110501
  2. DULOXETINE HYDROCHLORIDE [Suspect]
     Dosage: 40 mg, qd
     Route: 048
     Dates: start: 20110502, end: 20110504
  3. REFLEX                             /01293201/ [Concomitant]
     Indication: MAJOR DEPRESSION
     Dosage: UNK
     Dates: end: 20110501
  4. SENIRAN [Concomitant]
     Indication: MAJOR DEPRESSION
     Dosage: UNK

REACTIONS (1)
  - Akathisia [Recovered/Resolved]
